FAERS Safety Report 17692436 (Version 5)
Quarter: 2020Q4

REPORT INFORMATION
  Report Type: Report from Study
  Country: US (occurrence: US)
  Receive Date: 20200422
  Receipt Date: 20201006
  Transmission Date: 20210113
  Serious: Yes (Other)
  Sender: FDA-Public Use
  Company Number: US-BAYER-2020-062090

PATIENT
  Age: 46 Year
  Sex: Female
  Weight: 55.4 kg

DRUGS (3)
  1. OLAPARIB. [Suspect]
     Active Substance: OLAPARIB
     Indication: COLON CANCER
     Dosage: 200 MG, BID (11200 MG)
     Route: 048
     Dates: start: 20200212, end: 20200303
  2. COPANLISIB. [Suspect]
     Active Substance: COPANLISIB
     Indication: COLON CANCER
     Dosage: 45 MG DAYS 1, 8 AND 15 (135 MG)
     Route: 042
     Dates: start: 20200212, end: 20200225
  3. OLAPARIB. [Suspect]
     Active Substance: OLAPARIB
     Indication: COLON CANCER
     Dosage: 200 MG, BID (11200 MG)
     Route: 048
     Dates: start: 20200317, end: 20200322

REACTIONS (3)
  - Alanine aminotransferase increased [Recovering/Resolving]
  - Neutrophil count decreased [Recovering/Resolving]
  - Aspartate aminotransferase increased [Recovering/Resolving]

NARRATIVE: CASE EVENT DATE: 20200303
